FAERS Safety Report 21758931 (Version 1)
Quarter: 2022Q4

REPORT INFORMATION
  Report Type: Report from Study
  Country: US (occurrence: US)
  Receive Date: 20221221
  Receipt Date: 20221221
  Transmission Date: 20230113
  Serious: Yes (Other)
  Sender: FDA-Public Use
  Company Number: US-ABBVIE-4243772

PATIENT
  Sex: Male

DRUGS (1)
  1. VENCLEXTA [Suspect]
     Active Substance: VENETOCLAX
     Indication: Chronic myelomonocytic leukaemia
     Dosage: 4 TABLETS BY MOUTH DAILY FROM DAY 22 TO DAY 3 OF CONDITIONING REGIMEN AS DIRECTED?FORM STRENGTH: ...
     Route: 048

REACTIONS (1)
  - Stem cell transplant [Unknown]
